FAERS Safety Report 6481250-X (Version None)
Quarter: 2009Q4

REPORT INFORMATION
  Report Type: 
  Country: None (occurrence: None)
  Receive Date: 20091208
  Receipt Date: 20091201
  Transmission Date: 20100525
  Serious: Yes (Other)
  Sender: FDA-Public Use
  Company Number: A0813380A

PATIENT
  Age: 36 Year
  Sex: Female
  Weight: 78.2 kg

DRUGS (13)
  1. SUMATRIPTAN SUCCINATE [Suspect]
     Indication: MIGRAINE
     Dosage: 100MG AS REQUIRED
     Route: 048
  2. PROPRANOLOL [Concomitant]
     Dosage: 20MG TWICE PER DAY
     Route: 048
  3. TOPAMAX [Concomitant]
     Dosage: 100MG PER DAY
     Route: 048
  4. NORTRIPTYLINE [Concomitant]
     Dosage: 50MG AT NIGHT
     Route: 048
  5. WELLBUTRIN [Concomitant]
     Dosage: 300MG PER DAY
     Route: 048
  6. LEVSIN [Concomitant]
     Dosage: .125MG AS REQUIRED
     Route: 048
  7. SIMVASTATIN [Concomitant]
     Dosage: 40MG AT NIGHT
     Route: 048
  8. REGLAN [Concomitant]
     Route: 048
  9. PROMETHAZINE [Concomitant]
     Route: 048
  10. ALBUTEROL [Concomitant]
  11. CYPROHEPTADINE [Concomitant]
     Dosage: 4MG THREE TIMES PER DAY
     Route: 048
  12. METFORMIN HCL [Concomitant]
     Dosage: 1000MG TWICE PER DAY
     Route: 048
  13. REQUIP [Concomitant]

REACTIONS (2)
  - BONE PAIN [None]
  - PAIN IN JAW [None]
